FAERS Safety Report 8853137 (Version 1)
Quarter: 2012Q4

REPORT INFORMATION
  Report Type: Report from Study
  Country: JP (occurrence: JP)
  Receive Date: 20121022
  Receipt Date: 20121022
  Transmission Date: 20130627
  Serious: Yes (Death)
  Sender: FDA-Public Use
  Company Number: JP-009507513-1207JPN004217

PATIENT
  Age: 76 Year
  Sex: Female
  Weight: 43 kg

DRUGS (10)
  1. TEMODAL [Suspect]
     Indication: GLIOBLASTOMA MULTIFORME
     Dosage: 150 mg/m2, qd
     Route: 041
     Dates: start: 20101026, end: 20101030
  2. TEMODAL [Suspect]
     Dosage: 150 mg/m2, qd
     Route: 041
     Dates: start: 20101117, end: 20101121
  3. TEMODAL [Suspect]
     Dosage: 150 mg/m2, qd
     Route: 041
     Dates: start: 20101220, end: 20101224
  4. TEMODAL [Suspect]
     Dosage: 150 mg/m2, qd
     Route: 041
     Dates: start: 20110117, end: 20110121
  5. TEMODAL [Suspect]
     Dosage: 150 mg/m2, qd
     Route: 041
     Dates: start: 20110221, end: 20110225
  6. TEMODAL [Suspect]
     Dosage: 150 mg/m2, qd
     Route: 041
     Dates: start: 20110322, end: 20110326
  7. DECADRON PHOSPHATE INJECTION [Concomitant]
     Dosage: Daily dosage unknown
     Route: 042
     Dates: start: 20101016, end: 20101025
  8. GLYCEOL (FRUCTOSE (+) GLYCERIN (+) SODIUM CHLORIDE) [Concomitant]
     Dosage: Daily dosage unknown
     Route: 042
     Dates: start: 20101016, end: 20101028
  9. HUMULIN R [Concomitant]
     Dosage: Daily dosage unknown
     Route: 042
     Dates: start: 20101015
  10. DEPAKENE [Concomitant]
     Dosage: Daily dosage unknown
     Route: 048
     Dates: start: 20110226, end: 20110421

REACTIONS (6)
  - Disease progression [Fatal]
  - Pneumonia aspiration [Recovered/Resolved]
  - Anaemia [Not Recovered/Not Resolved]
  - White blood cell count decreased [Recovering/Resolving]
  - Lymphocyte count decreased [Recovered/Resolved]
  - Platelet count decreased [Recovered/Resolved]
